FAERS Safety Report 8359487-4 (Version None)
Quarter: 2012Q2

REPORT INFORMATION
  Report Type: 
  Country: None (occurrence: None)
  Receive Date: 20120515
  Receipt Date: 20120504
  Transmission Date: 20120825
  Serious: Yes (Hospitalization, Other)
  Sender: FDA-Public Use
  Company Number: US-ELI_LILLY_AND_COMPANY-US201205002593

PATIENT
  Sex: Female
  Weight: 58.503 kg

DRUGS (7)
  1. PLAVIX [Concomitant]
  2. CELEXA [Concomitant]
  3. HUMALOG MIX 75/25 [Suspect]
     Indication: DIABETES MELLITUS
     Dosage: 25 U, EACH MORNING
     Dates: start: 20120101
  4. HUMALOG MIX 75/25 [Suspect]
     Dosage: 18 U, EACH EVENING
     Dates: start: 20120101
  5. VALIUM [Concomitant]
  6. SIMVASTATIN [Concomitant]
  7. GLYBURIDE [Concomitant]
     Indication: DIABETES MELLITUS

REACTIONS (8)
  - BLOOD GLUCOSE INCREASED [None]
  - WEIGHT DECREASED [None]
  - HUMERUS FRACTURE [None]
  - FEELING ABNORMAL [None]
  - PSYCHIATRIC SYMPTOM [None]
  - CONFUSIONAL STATE [None]
  - INCORRECT STORAGE OF DRUG [None]
  - BLOOD GLUCOSE FLUCTUATION [None]
